FAERS Safety Report 24863159 (Version 2)
Quarter: 2025Q1

REPORT INFORMATION
  Report Type: Spontaneous
  Country: US (occurrence: US)
  Receive Date: 20250120
  Receipt Date: 20250312
  Transmission Date: 20250408
  Serious: No
  Sender: SANOFI AVENTIS
  Company Number: US-SA-2025SA016971

PATIENT
  Age: 66 Year
  Sex: Female

DRUGS (1)
  1. DUPIXENT [Suspect]
     Active Substance: DUPILUMAB
     Indication: Neurodermatitis
     Dosage: 300 MG, QOW
     Route: 058
     Dates: start: 202412

REACTIONS (13)
  - Heart rate increased [Unknown]
  - Tongue disorder [Unknown]
  - Lacrimation increased [Unknown]
  - Vision blurred [Unknown]
  - Weight decreased [Unknown]
  - Decreased appetite [Unknown]
  - Pruritus [Unknown]
  - Therapeutic response decreased [Unknown]
  - Ocular hyperaemia [Unknown]
  - Eye pruritus [Unknown]
  - Neurodermatitis [Unknown]
  - Eye irritation [Unknown]
  - Therapeutic response shortened [Unknown]

NARRATIVE: CASE EVENT DATE: 20250101
